FAERS Safety Report 19442730 (Version 2)
Quarter: 2022Q4

REPORT INFORMATION
  Report Type: Report from Study
  Country: US (occurrence: US)
  Receive Date: 20210621
  Receipt Date: 20221230
  Transmission Date: 20230113
  Serious: No
  Sender: FDA-Public Use
  Company Number: US-ACORDA-ACO_169242_2021

PATIENT
  Sex: Male

DRUGS (4)
  1. INBRIJA [Suspect]
     Active Substance: LEVODOPA
     Indication: On and off phenomenon
     Dosage: 84 MILLIGRAM, AS NEEDED, 5 TIMES DAILY
     Dates: start: 20201128
  2. INBRIJA [Suspect]
     Active Substance: LEVODOPA
     Indication: Parkinson^s disease
  3. CRESTOR [Concomitant]
     Active Substance: ROSUVASTATIN CALCIUM
     Indication: Product used for unknown indication
     Dosage: 20 MILLIGRAM
     Route: 065
  4. EXELON [Concomitant]
     Active Substance: RIVASTIGMINE TARTRATE
     Indication: Product used for unknown indication
     Dosage: 9.5 MG/24
     Route: 065

REACTIONS (2)
  - Hallucination [Not Recovered/Not Resolved]
  - Somnolence [Not Recovered/Not Resolved]
